FAERS Safety Report 17918630 (Version 4)
Quarter: 2020Q3

REPORT INFORMATION
  Report Type: Spontaneous
  Country: US (occurrence: US)
  Receive Date: 20200619
  Receipt Date: 20200831
  Transmission Date: 20201103
  Serious: Yes (Hospitalization, Other)
  Sender: FDA-Public Use
  Company Number: US-JNJFOC-20200618467

PATIENT
  Age: 48 Year
  Sex: Female
  Weight: 63.56 kg

DRUGS (66)
  1. PRILOSEC [Concomitant]
     Active Substance: OMEPRAZOLE MAGNESIUM
  2. XIFAXAN [Concomitant]
     Active Substance: RIFAXIMIN
  3. CHOLECALCIFEROL [Concomitant]
     Active Substance: CHOLECALCIFEROL
     Dates: start: 20140219
  4. LACTULOSE. [Concomitant]
     Active Substance: LACTULOSE
  5. FERROUS SULFATE. [Concomitant]
     Active Substance: FERROUS SULFATE
     Dates: start: 20151105
  6. LEVOTHYROXINE. [Concomitant]
     Active Substance: LEVOTHYROXINE
  7. IPRATROPIUM [Concomitant]
     Active Substance: IPRATROPIUM
  8. CHLORHEXIDINE [Concomitant]
     Active Substance: CHLORHEXIDINE
     Dates: start: 20191227
  9. PHOSPHATE SANDOZ [Concomitant]
     Active Substance: SODIUM PHOSPHATE, MONOBASIC, ANHYDROUS
     Dates: start: 20191227
  10. PROPOFOL. [Concomitant]
     Active Substance: PROPOFOL
     Dates: start: 20191227
  11. LASIX [Concomitant]
     Active Substance: FUROSEMIDE
     Route: 048
  12. RIVAROXABAN [Suspect]
     Active Substance: RIVAROXABAN
     Indication: THROMBOSIS
     Route: 048
  13. RIVAROXABAN [Suspect]
     Active Substance: RIVAROXABAN
     Indication: DEEP VEIN THROMBOSIS
     Route: 048
  14. OPSUMIT [Suspect]
     Active Substance: MACITENTAN
     Route: 048
     Dates: start: 20200121, end: 20200815
  15. ACTIGALL [Concomitant]
     Active Substance: URSODIOL
  16. RIFAXIMIN. [Concomitant]
     Active Substance: RIFAXIMIN
  17. CALCIUM CARBONATE. [Concomitant]
     Active Substance: CALCIUM CARBONATE
     Dates: start: 20190716
  18. SENNA LAXATIVE [Concomitant]
     Active Substance: SENNOSIDES
     Dates: start: 20190716
  19. SERTRALINE [Concomitant]
     Active Substance: SERTRALINE HYDROCHLORIDE
     Dates: start: 20190716
  20. MAGNESIUM SULFATE. [Concomitant]
     Active Substance: MAGNESIUM SULFATE
     Dates: start: 20191227
  21. RANITIDINE. [Concomitant]
     Active Substance: RANITIDINE
     Dates: start: 20191227
  22. LASIX [Concomitant]
     Active Substance: FUROSEMIDE
     Route: 048
  23. ASPIRIN                            /00002701/ [Suspect]
     Active Substance: ASPIRIN
     Indication: PRODUCT USED FOR UNKNOWN INDICATION
     Route: 065
  24. OPSUMIT [Suspect]
     Active Substance: MACITENTAN
     Indication: PULMONARY ARTERIAL HYPERTENSION
     Route: 048
     Dates: start: 20140801, end: 20200104
  25. OXYCODONE [Concomitant]
     Active Substance: OXYCODONE
  26. ALDACTONE [Concomitant]
     Active Substance: SPIRONOLACTONE
  27. DEXTROSE. [Concomitant]
     Active Substance: DEXTROSE
     Dates: start: 20150906
  28. IOHEXOL [Concomitant]
     Active Substance: IOHEXOL
     Dates: start: 20160417
  29. NICOTINE. [Concomitant]
     Active Substance: NICOTINE
     Dates: start: 20190716
  30. FERROUS SULFATE. [Concomitant]
     Active Substance: FERROUS SULFATE
  31. ACETAMINOPHEN. [Concomitant]
     Active Substance: ACETAMINOPHEN
     Dates: start: 20191227
  32. OXYMETAZOLINE [Concomitant]
     Active Substance: OXYMETAZOLINE
     Dates: start: 20191227
  33. SODIUM CHLORIDE. [Concomitant]
     Active Substance: SODIUM CHLORIDE
     Dates: start: 20191227
  34. ZANTAC [Concomitant]
     Active Substance: RANITIDINE HYDROCHLORIDE
  35. ALBUMIN [Concomitant]
     Active Substance: ALBUMIN HUMAN
     Dates: start: 20150906
  36. OMEPRAZOLE. [Concomitant]
     Active Substance: OMEPRAZOLE
  37. IODIXANOL. [Concomitant]
     Active Substance: IODIXANOL
     Dates: start: 20191227
  38. ALBUTEROL W/IPRATROPIUM [Concomitant]
     Active Substance: ALBUTEROL\IPRATROPIUM
     Dates: start: 20191227
  39. ONDASETRON                         /00955301/ [Concomitant]
     Active Substance: ONDANSETRON
     Dates: start: 20191227
  40. HYDROMORPHONE [Concomitant]
     Active Substance: HYDROMORPHONE
     Dates: start: 20191227
  41. METRONIDAZOLE. [Concomitant]
     Active Substance: METRONIDAZOLE
     Dates: start: 20191227
  42. PERFLUTREN [Concomitant]
     Active Substance: PERFLUTREN
     Dates: start: 20191227
  43. ENOXAPARIN [Concomitant]
     Active Substance: ENOXAPARIN
     Dates: start: 20160417
  44. FOLIC ACID. [Concomitant]
     Active Substance: FOLIC ACID
     Dates: start: 20150307
  45. ALBUTEROL                          /00139501/ [Concomitant]
     Active Substance: ALBUTEROL
     Dates: start: 20190716
  46. LEVOFLOXACIN. [Concomitant]
     Active Substance: LEVOFLOXACIN
  47. CALAMINE LOTION PHENOLATED [Concomitant]
     Dates: start: 20191227
  48. CEFEPIME [Concomitant]
     Active Substance: CEFEPIME HYDROCHLORIDE
     Dates: start: 20191227
  49. DEXTROSE 5% [Concomitant]
     Active Substance: DEXTROSE
     Dates: start: 20191227
  50. FAMOTIDINE. [Concomitant]
     Active Substance: FAMOTIDINE
     Dates: start: 20191227
  51. PROCHLORPERAZINE. [Concomitant]
     Active Substance: PROCHLORPERAZINE
     Dates: start: 20191227
  52. THIAMINE. [Concomitant]
     Active Substance: THIAMINE
     Dates: start: 20191227
  53. LASIX [Concomitant]
     Active Substance: FUROSEMIDE
     Indication: OEDEMA PERIPHERAL
     Route: 048
     Dates: start: 20150131
  54. REVATIO [Concomitant]
     Active Substance: SILDENAFIL CITRATE
  55. CEPHULAC [Concomitant]
     Active Substance: LACTULOSE
  56. POTASSIUM CHLORIDE. [Concomitant]
     Active Substance: POTASSIUM CHLORIDE
     Dates: start: 20160220
  57. AZITHROMYCIN ANHYDROUS. [Concomitant]
     Active Substance: AZITHROMYCIN ANHYDROUS
     Dates: start: 20191227
  58. CARVEDILOL. [Concomitant]
     Active Substance: CARVEDILOL
     Dates: start: 20191227
  59. NOREPINEPHRINE. [Concomitant]
     Active Substance: NOREPINEPHRINE
     Dates: start: 20191227
  60. METOLAZONE. [Concomitant]
     Active Substance: METOLAZONE
     Indication: OEDEMA PERIPHERAL
     Route: 048
     Dates: start: 20140219
  61. DABIGATRAN [Concomitant]
     Active Substance: DABIGATRAN
     Dates: start: 20111129
  62. OXYGEN. [Concomitant]
     Active Substance: OXYGEN
     Dates: start: 20131014
  63. FENTANYL. [Concomitant]
     Active Substance: FENTANYL
     Dates: start: 20150822
  64. SPIRONOLACTONE. [Concomitant]
     Active Substance: SPIRONOLACTONE
     Dates: start: 20100222
  65. METHADONE [Concomitant]
     Active Substance: METHADONE HYDROCHLORIDE
     Dates: start: 20080225
  66. INSULIN LISPRO [Concomitant]
     Active Substance: INSULIN LISPRO
     Dates: start: 20191227

REACTIONS (37)
  - Hypervolaemia [Recovered/Resolved]
  - Septic shock [Unknown]
  - Gastrointestinal haemorrhage [Recovered/Resolved with Sequelae]
  - Post thrombotic syndrome [Unknown]
  - Blood lactate dehydrogenase increased [Unknown]
  - Hepatic encephalopathy [Unknown]
  - Toxic encephalopathy [Recovered/Resolved]
  - Wound infection pseudomonas [Unknown]
  - Adverse event [Unknown]
  - Compression fracture [Unknown]
  - Gastric polyps [Unknown]
  - Surgery [Unknown]
  - Internal haemorrhage [Unknown]
  - Varices oesophageal [Unknown]
  - Back pain [Recovered/Resolved]
  - Ammonia increased [Unknown]
  - Cellulitis [Unknown]
  - Gastrointestinal erosion [Unknown]
  - Portal hypertensive gastropathy [Unknown]
  - Respiratory distress [Unknown]
  - Portal hypertension [Unknown]
  - Skin ulcer [Unknown]
  - Abdominal pain [Recovered/Resolved]
  - Pneumonia [Unknown]
  - Gastric ulcer [Unknown]
  - Peripheral venous disease [Unknown]
  - Gastrointestinal mucosal disorder [Unknown]
  - Blood bilirubin increased [Unknown]
  - Pneumonia escherichia [Unknown]
  - Condition aggravated [Unknown]
  - Dermatitis [Unknown]
  - Dysphagia [Unknown]
  - Pulmonary oedema [Unknown]
  - Right ventricular failure [Unknown]
  - Hypothyroidism [Unknown]
  - Haemorrhage [Unknown]
  - Gastrooesophageal reflux disease [Unknown]

NARRATIVE: CASE EVENT DATE: 20150717
